FAERS Safety Report 8404751-3 (Version None)
Quarter: 2012Q2

REPORT INFORMATION
  Report Type: 
  Country: None (occurrence: None)
  Receive Date: 20120601
  Receipt Date: 20120523
  Transmission Date: 20120825
  Serious: Yes (Other)
  Sender: FDA-Public Use
  Company Number: US-ASTRAZENECA-2012SE33157

PATIENT
  Sex: Female

DRUGS (1)
  1. PULMICORT FLEXHALER [Suspect]
     Route: 055
     Dates: start: 20120523

REACTIONS (5)
  - MALAISE [None]
  - DIARRHOEA [None]
  - GLUCOSE TOLERANCE IMPAIRED [None]
  - ORAL CANDIDIASIS [None]
  - PANCREATIC CARCINOMA [None]
